FAERS Safety Report 8294340-6 (Version None)
Quarter: 2012Q2

REPORT INFORMATION
  Report Type: 
  Country: None (occurrence: None)
  Receive Date: 20120418
  Receipt Date: 20120411
  Transmission Date: 20120825
  Serious: Yes (Other)
  Sender: FDA-Public Use
  Company Number: ES-BRISTOL-MYERS SQUIBB COMPANY-16514317

PATIENT
  Age: 67 Year
  Sex: Female

DRUGS (1)
  1. FOSINOPRIL SODIUM [Suspect]
     Indication: HYPERTENSION
     Dosage: 1 DF: 20MG/12.5 MG TABLETS,28 TABLETS(TRANSPARENT)
     Route: 048
     Dates: start: 20110510, end: 20110810

REACTIONS (1)
  - PANCYTOPENIA [None]
